FAERS Safety Report 8986491 (Version 1)
Quarter: 2012Q4

REPORT INFORMATION
  Report Type: Report from Study
  Country: CA (occurrence: CA)
  Receive Date: 20121226
  Receipt Date: 20121226
  Transmission Date: 20130627
  Serious: Yes (Other)
  Sender: FDA-Public Use
  Company Number: CA-ROCHE-1172739

PATIENT
  Sex: Male

DRUGS (3)
  1. CAPECITABINE [Suspect]
     Indication: GASTRIC CANCER
     Route: 065
     Dates: start: 20111108
  2. CISPLATIN [Suspect]
     Indication: GASTRIC CANCER
     Route: 065
  3. TRASTUZUMAB [Suspect]
     Indication: GASTRIC CANCER
     Route: 065

REACTIONS (3)
  - Disease progression [Unknown]
  - Toxicity to various agents [Unknown]
  - Gastric cancer [None]
